FAERS Safety Report 10465074 (Version 1)
Quarter: 2014Q3

REPORT INFORMATION
  Report Type: Spontaneous
  Country: PL (occurrence: PL)
  Receive Date: 20140919
  Receipt Date: 20140919
  Transmission Date: 20150326
  Serious: Yes (Death, Hospitalization)
  Sender: FDA-Public Use
  Company Number: PL-MYLANLABS-2014M1004724

PATIENT

DRUGS (2)
  1. METFORMIN [Suspect]
     Active Substance: METFORMIN HYDROCHLORIDE
     Indication: OFF LABEL USE
  2. METFORMIN [Suspect]
     Active Substance: METFORMIN HYDROCHLORIDE
     Indication: OVERDOSE
     Dosage: 100 METFORMIN 1000MG TABLETS
     Route: 048

REACTIONS (14)
  - Circulatory collapse [Fatal]
  - Intentional overdose [None]
  - Loss of consciousness [Unknown]
  - Regurgitation [None]
  - Multi-organ failure [Fatal]
  - Hypoglycaemia [None]
  - Respiratory failure [Fatal]
  - Exposure via ingestion [None]
  - Nausea [None]
  - Toxicity to various agents [Fatal]
  - Completed suicide [Fatal]
  - Metabolic acidosis [Unknown]
  - Overdose [Fatal]
  - Asthenia [None]
